FAERS Safety Report 8334258-3 (Version None)
Quarter: 2012Q2

REPORT INFORMATION
  Report Type: 
  Country: None (occurrence: None)
  Receive Date: 20120503
  Receipt Date: 20120427
  Transmission Date: 20120825
  Serious: Yes (Other)
  Sender: FDA-Public Use
  Company Number: PHHY2012TW036505

PATIENT
  Age: 49 Year
  Sex: Female

DRUGS (6)
  1. EPIRUBICIN [Suspect]
     Indication: INTESTINAL T-CELL LYMPHOMA
     Dosage: 6-CYCLES
  2. CYCLOPHOSPHAMIDE [Suspect]
     Indication: INTESTINAL T-CELL LYMPHOMA
     Dosage: 6 CYCLES
  3. VINCRISTINE [Suspect]
     Indication: INTESTINAL T-CELL LYMPHOMA
     Dosage: 6-CYCLES
  4. RITUXIMAB [Suspect]
     Indication: INTESTINAL T-CELL LYMPHOMA
  5. DEXAMETHASONE [Suspect]
     Indication: INTESTINAL T-CELL LYMPHOMA
     Dosage: 6-CYCLES
  6. LAMIVUDINE [Concomitant]
     Indication: ANTIVIRAL PROPHYLAXIS

REACTIONS (4)
  - THROMBOCYTOPENIA [None]
  - LEUKOPENIA [None]
  - HEPATITIS ACUTE [None]
  - ERYTHEMA INFECTIOSUM [None]
